FAERS Safety Report 6291411-0 (Version None)
Quarter: 2009Q3

REPORT INFORMATION
  Report Type: 
  Country: None (occurrence: None)
  Receive Date: 20090730
  Receipt Date: 20090722
  Transmission Date: 20100115
  Serious: Yes (Death)
  Sender: FDA-Public Use
  Company Number: JP-ABBOTT-09P-087-0583688-00

PATIENT
  Age: 75 Year
  Sex: Male
  Weight: 45 kg

DRUGS (1)
  1. LEUPROLIDE ACETATE [Suspect]
     Indication: PROSTATE CANCER STAGE II
     Route: 058
     Dates: start: 20060317, end: 20071026

REACTIONS (1)
  - MYOCARDIAL INFARCTION [None]
